FAERS Safety Report 13895820 (Version 1)
Quarter: 2017Q3

REPORT INFORMATION
  Report Type: Spontaneous
  Country: HU (occurrence: HU)
  Receive Date: 20170823
  Receipt Date: 20170823
  Transmission Date: 20171127
  Serious: Yes (Life-Threatening, Hospitalization, Other)
  Sender: FDA-Public Use
  Company Number: HU-ACCORD-057695

PATIENT
  Age: 54 Year
  Sex: Male

DRUGS (8)
  1. CISPLATIN ACCORD [Suspect]
     Active Substance: CISPLATIN
     Indication: TESTICULAR GERM CELL CANCER METASTATIC
     Route: 041
     Dates: start: 20170703, end: 20170707
  2. BLEOMYCIN [Interacting]
     Active Substance: BLEOMYCIN SULFATE
     Indication: TESTICULAR GERM CELL CANCER METASTATIC
     Dosage: STRENGTH: 15 UNIT
     Route: 030
     Dates: start: 20170704, end: 20170710
  3. FRAGMIN [Concomitant]
     Active Substance: DALTEPARIN SODIUM
     Indication: THROMBOSIS PROPHYLAXIS
     Route: 058
     Dates: start: 20170609, end: 20170716
  4. ALGOPYRIN [Concomitant]
     Active Substance: METAMIZOLE SODIUM
     Dates: start: 20170704, end: 20170710
  5. SUPRASTIN [Concomitant]
     Active Substance: CHLOROPYRAMINE HYDROCHLORIDE
     Dates: start: 20170704, end: 20170710
  6. ETOPOSIDE ACCORD [Interacting]
     Active Substance: ETOPOSIDE
     Indication: TESTICULAR GERM CELL CANCER METASTATIC
     Route: 042
     Dates: start: 20170703, end: 20170707
  7. LIDOCAINE. [Concomitant]
     Active Substance: LIDOCAINE
     Dosage: STRENGTH: 2 ML OF A 2% SOLUTION
     Dates: start: 20170704, end: 20170710
  8. RALGEN [Concomitant]
     Indication: CANCER PAIN
     Route: 048
     Dates: start: 20170615, end: 20170715

REACTIONS (4)
  - Weight decreased [Recovered/Resolved]
  - Thrombocytopenia [Recovered/Resolved]
  - Drug interaction [Unknown]
  - Febrile neutropenia [Recovered/Resolved]

NARRATIVE: CASE EVENT DATE: 201707
